FAERS Safety Report 14239820 (Version 1)
Quarter: 2017Q4

REPORT INFORMATION
  Report Type: Spontaneous
  Country: US (occurrence: US)
  Receive Date: 20171128
  Receipt Date: 20171128
  Transmission Date: 20180321
  Serious: Yes (Other)
  Sender: FDA-Public Use
  Company Number: None

PATIENT
  Age: 57 Year
  Sex: Male
  Weight: 70.2 kg

DRUGS (5)
  1. ZOSYN [Suspect]
     Active Substance: PIPERACILLIN SODIUM\TAZOBACTAM SODIUM
     Indication: GANGRENE
     Route: 042
     Dates: start: 20171111, end: 20171112
  2. LINEZOLID. [Concomitant]
     Active Substance: LINEZOLID
  3. VANCOMYCIN [Suspect]
     Active Substance: VANCOMYCIN
     Indication: GANGRENE
     Route: 042
     Dates: start: 20171111, end: 20171111
  4. CEPHALEXIN. [Concomitant]
     Active Substance: CEPHALEXIN
  5. CLINDAMYCIN. [Concomitant]
     Active Substance: CLINDAMYCIN

REACTIONS (1)
  - Diabetic nephropathy [None]

NARRATIVE: CASE EVENT DATE: 20171111
